FAERS Safety Report 6164272-8 (Version None)
Quarter: 2009Q2

REPORT INFORMATION
  Report Type: 
  Country: None (occurrence: None)
  Receive Date: 20090420
  Receipt Date: 20090403
  Transmission Date: 20091009
  Serious: Yes (Congenital Anomaly)
  Sender: FDA-Public Use
  Company Number: 8037970

PATIENT
  Age: 33 Year
  Sex: Female
  Weight: 108 kg

DRUGS (5)
  1. KEPPRA [Suspect]
     Indication: EPILEPSY
     Dosage: 500 MG 6/D PO
     Route: 048
     Dates: start: 20030101
  2. DEPAKENE [Concomitant]
  3. DIOVENOR [Concomitant]
  4. LEVOTHYROX [Concomitant]
  5. ORAL CONTRACEPTION [Concomitant]

REACTIONS (3)
  - ARTHRALGIA [None]
  - HYPOGAMMAGLOBULINAEMIA [None]
  - INFECTION SUSCEPTIBILITY INCREASED [None]
